FAERS Safety Report 8399475-5 (Version None)
Quarter: 2012Q2

REPORT INFORMATION
  Report Type: 
  Country: None (occurrence: None)
  Receive Date: 20120531
  Receipt Date: 20120528
  Transmission Date: 20120825
  Serious: Yes (Other)
  Sender: FDA-Public Use
  Company Number: US-TEVA-340384USA

PATIENT
  Age: 69 Year
  Sex: Female

DRUGS (7)
  1. RISEDRONIC ACID [Concomitant]
     Dosage: 35 MG/WEEK
     Route: 065
  2. ETODOLAC [Concomitant]
     Indication: RHEUMATOID ARTHRITIS
     Route: 065
  3. FOLIC ACID [Concomitant]
     Dosage: 1 MG/DAY
     Route: 065
  4. ETANERCEPT [Suspect]
     Indication: RHEUMATOID ARTHRITIS
     Dosage: 7.1429 MILLIGRAM; 50 MG/WEEK FOR THE LAST 7 YEARS
     Route: 058
  5. ENALAPRIL MALEATE [Concomitant]
     Dosage: 20 MG/DAY
     Route: 065
  6. METHOTREXATE [Suspect]
     Indication: RHEUMATOID ARTHRITIS
     Dosage: 2.1429 MILLIGRAM; 15 MG/WEEK FOR THE LAST 17 YEARS
     Route: 065
  7. SIMVASTATIN [Concomitant]
     Dosage: 20 MG/DAY
     Route: 065

REACTIONS (2)
  - BREAST CANCER [None]
  - NON-HODGKIN'S LYMPHOMA STAGE IV [None]
